FAERS Safety Report 14343569 (Version 4)
Quarter: 2019Q3

REPORT INFORMATION
  Report Type: Spontaneous
  Country: PL (occurrence: PL)
  Receive Date: 20180102
  Receipt Date: 20190829
  Transmission Date: 20191004
  Serious: Yes (Death)
  Sender: FDA-Public Use
  Company Number: PL-PFIZER INC-2017554140

PATIENT
  Age: 60 Year
  Sex: Female

DRUGS (6)
  1. CISPLATIN. [Suspect]
     Active Substance: CISPLATIN
     Indication: LUNG SQUAMOUS CELL CARCINOMA METASTATIC
     Dosage: 80 MG/M2, CYCLIC (EVERY 21 DAYS)
     Route: 042
  2. KETOPROFEN. [Concomitant]
     Active Substance: KETOPROFEN
     Indication: LUNG SQUAMOUS CELL CARCINOMA METASTATIC
     Dosage: 100 MG, DAILY
  3. TRAMADOL. [Concomitant]
     Active Substance: TRAMADOL
     Indication: LUNG SQUAMOUS CELL CARCINOMA METASTATIC
     Dosage: 50 MG, TWICE DAILY
  4. DEXAMETHASONE. [Concomitant]
     Active Substance: DEXAMETHASONE
     Indication: LUNG SQUAMOUS CELL CARCINOMA METASTATIC
     Dosage: 4 MG, DAILY
  5. OMEPRAZOLE. [Concomitant]
     Active Substance: OMEPRAZOLE
     Indication: LUNG SQUAMOUS CELL CARCINOMA METASTATIC
     Dosage: 20 MG, DAILY
  6. GEMCITABINE HYDROCHLORIDE. [Suspect]
     Active Substance: GEMCITABINE HYDROCHLORIDE
     Indication: LUNG SQUAMOUS CELL CARCINOMA METASTATIC
     Dosage: 1250 MG/M2, CYCLIC, ON DAY 1 AND 8

REACTIONS (3)
  - Hepatic failure [Fatal]
  - Shock [Fatal]
  - Pulmonary oedema [Fatal]
